FAERS Safety Report 8205292-9 (Version None)
Quarter: 2012Q1

REPORT INFORMATION
  Report Type: 
  Country: None (occurrence: None)
  Receive Date: 20120313
  Receipt Date: 20120301
  Transmission Date: 20120608
  Serious: Yes (Hospitalization)
  Sender: FDA-Public Use
  Company Number: IT-ROCHE-774259

PATIENT
  Sex: Male

DRUGS (3)
  1. PEGINTERFERON ALFA-2A [Suspect]
     Indication: HEPATITIS C
     Route: 042
     Dates: start: 20110128, end: 20110427
  2. COPEGUS [Suspect]
     Indication: HEPATITIS C
     Route: 048
     Dates: start: 20110128, end: 20110427
  3. THEO-DUR [Concomitant]
     Indication: BRONCHITIS CHRONIC
     Route: 048
     Dates: start: 20101020, end: 20110901

REACTIONS (2)
  - ULTRASOUND LIVER ABNORMAL [None]
  - BRONCHITIS CHRONIC [None]
